FAERS Safety Report 23703448 (Version 2)
Quarter: 2024Q2

REPORT INFORMATION
  Report Type: Spontaneous
  Country: CH (occurrence: CH)
  Receive Date: 20240403
  Receipt Date: 20240409
  Transmission Date: 20240716
  Serious: Yes (Other)
  Sender: FDA-Public Use
  Company Number: None

PATIENT
  Sex: Female

DRUGS (2)
  1. FENOFIBRATE [Suspect]
     Active Substance: FENOFIBRATE
     Indication: Hypertriglyceridaemia
     Dosage: 200 MILLIGRAM, QD (200 MG/DAY)
     Route: 048
     Dates: start: 20240101, end: 20240226
  2. FENOFIBRATE [Suspect]
     Active Substance: FENOFIBRATE
     Indication: Oedematous pancreatitis

REACTIONS (2)
  - Hepatic cytolysis [Recovering/Resolving]
  - Biopsy liver abnormal [Recovering/Resolving]
